FAERS Safety Report 5578856-9 (Version None)
Quarter: 2007Q4

REPORT INFORMATION
  Report Type: 
  Country: None (occurrence: None)
  Receive Date: 20071228
  Receipt Date: 20071218
  Transmission Date: 20080405
  Serious: Yes (Hospitalization, Other)
  Sender: FDA-Public Use
  Company Number: 2007S1013562

PATIENT
  Age: 76 Year
  Sex: Female

DRUGS (28)
  1. LORAZEPAM [Suspect]
     Indication: ANXIETY
     Dosage: 0.5 MG;AS NEEDED;ORAL, 1 MG;AS NEEDED;ORAL
     Route: 048
     Dates: start: 20070217, end: 20070609
  2. LORAZEPAM [Suspect]
     Indication: ANXIETY
     Dosage: 0.5 MG;AS NEEDED;ORAL, 1 MG;AS NEEDED;ORAL
     Route: 048
     Dates: start: 20070217, end: 20070609
  3. SPIRONOLACTONE [Suspect]
     Indication: HYPERTENSION
     Dosage: 25 MG;DAILY;ORAL
     Route: 048
     Dates: start: 20070328, end: 20070609
  4. FUROSEMIDE [Suspect]
     Indication: HYPERTENSION
     Dosage: 40 MG;AS NEEDED;ORAL
     Route: 048
     Dates: start: 20070123
  5. ACETAMINOPHEN W/ PROPOXYPHENE HCL [Suspect]
     Indication: PAIN
     Dosage: 100 MG;AS NEEDED;ORAL, 650 MG;AS NEEDED;ORAL
     Route: 048
     Dates: start: 19760101, end: 20070606
  6. ACETAMINOPHEN W/ PROPOXYPHENE HCL [Suspect]
     Indication: PAIN
     Dosage: 100 MG;AS NEEDED;ORAL, 650 MG;AS NEEDED;ORAL
     Route: 048
     Dates: start: 19760101, end: 20070606
  7. HYDROCODONE BITARTRATE + ACETAMINOPHEN [Suspect]
     Indication: PAIN
     Dosage: 5 MG;AS NEEDED;ORAL, 500 MG;AS NEEDED;ORAL
     Route: 048
     Dates: start: 20070121, end: 20070609
  8. HYDROCODONE BITARTRATE + ACETAMINOPHEN [Suspect]
     Indication: PAIN
     Dosage: 5 MG;AS NEEDED;ORAL, 500 MG;AS NEEDED;ORAL
     Route: 048
     Dates: start: 20070121, end: 20070609
  9. OCUVITE /01053801/ [Concomitant]
  10. ALPRAZOLAM [Concomitant]
  11. ARTIFICIAL TEARS /00445101/ [Concomitant]
  12. DIMENHYDRINATE [Concomitant]
  13. DOCUSATE SODIUM [Concomitant]
  14. ALBUTEROL [Concomitant]
  15. ASPIRIN /00002801/ [Concomitant]
  16. INEXIUM /01479302/ [Concomitant]
  17. FERROUS SULFATE TAB [Concomitant]
  18. ZOCOR [Concomitant]
  19. MAALOX /00082501/ [Concomitant]
  20. MILK OF MAGNESIA [Concomitant]
  21. LISINOPRIL [Concomitant]
  22. POTASSIUM CHLORIDE [Concomitant]
  23. PROZAC /00724401/ [Concomitant]
  24. SEROQUEL [Concomitant]
  25. METFORMIN HCL [Concomitant]
  26. ALEVE [Concomitant]
  27. LUNESTA [Concomitant]
  28. METOPROLOL [Concomitant]

REACTIONS (12)
  - ADJUSTMENT DISORDER [None]
  - ANXIETY [None]
  - BACK PAIN [None]
  - BRADYCARDIA [None]
  - DEPRESSION [None]
  - DIZZINESS [None]
  - DYSARTHRIA [None]
  - ELECTROCARDIOGRAM QRS COMPLEX PROLONGED [None]
  - FALL [None]
  - GAIT DISTURBANCE [None]
  - ORAL INTAKE REDUCED [None]
  - URINARY TRACT INFECTION [None]
